FAERS Safety Report 8242277-0 (Version None)
Quarter: 2012Q1

REPORT INFORMATION
  Report Type: 
  Country: None (occurrence: None)
  Receive Date: 20120314
  Receipt Date: 20101019
  Transmission Date: 20120608
  Serious: Yes (Other)
  Sender: FDA-Public Use
  Company Number: PHHY2010US70178

PATIENT
  Age: 47 Year
  Sex: Female

DRUGS (7)
  1. FANAPT [Suspect]
     Indication: BIPOLAR DISORDER
  2. LAMITOL (LABETOLOL HYDROCHLORIDE) [Concomitant]
  3. WELLBUTRIN XL [Concomitant]
  4. KLANACEPAM [Concomitant]
  5. FOLIC ACID [Concomitant]
  6. SEROQUEL [Concomitant]
  7. LITHIUM CARBONATE [Concomitant]

REACTIONS (3)
  - URINARY INCONTINENCE [None]
  - CONFUSIONAL STATE [None]
  - DELIRIUM [None]
